FAERS Safety Report 16850614 (Version 1)
Quarter: 2019Q3

REPORT INFORMATION
  Report Type: Spontaneous
  Country: US (occurrence: US)
  Receive Date: 20190925
  Receipt Date: 20190925
  Transmission Date: 20191005
  Serious: No
  Sender: FDA-Public Use
  Company Number: US-THERAPEUTICSMD-2019TMD02304

PATIENT
  Age: 63 Year
  Sex: Female
  Weight: 60.32 kg

DRUGS (7)
  1. MONTELUKAST [Concomitant]
     Active Substance: MONTELUKAST SODIUM
  2. SIMVASTATIN. [Concomitant]
     Active Substance: SIMVASTATIN
     Dosage: UNK
  3. IMVEXXY [Suspect]
     Active Substance: ESTRADIOL
     Indication: URINARY TRACT INFECTION
     Dosage: 10 ?G, 1X/DAY AT NOON WHILE UPRIGHT AND ACTIVE
     Route: 067
     Dates: start: 20190729, end: 20190729
  4. QUETIAPINE. [Concomitant]
     Active Substance: QUETIAPINE
  5. ACYCLOVIR. [Concomitant]
     Active Substance: ACYCLOVIR
  6. ALENDRONATE [Concomitant]
     Active Substance: ALENDRONATE SODIUM
  7. OMEPRAZOLE. [Concomitant]
     Active Substance: OMEPRAZOLE

REACTIONS (2)
  - Headache [Recovered/Resolved]
  - Off label use [Recovered/Resolved]

NARRATIVE: CASE EVENT DATE: 20190729
